FAERS Safety Report 7289410-5 (Version None)
Quarter: 2011Q1

REPORT INFORMATION
  Report Type: 
  Country: None (occurrence: None)
  Receive Date: 20110211
  Receipt Date: 20110209
  Transmission Date: 20110831
  Serious: Yes (Hospitalization)
  Sender: FDA-Public Use
  Company Number: US-MEDIMMUNE-MEDI-0012456

PATIENT
  Sex: Male

DRUGS (3)
  1. ROTAVIRUS [Concomitant]
     Dates: start: 20110106, end: 20110106
  2. SYNAGIS [Suspect]
     Dates: end: 20110106
  3. PENTACEL [Concomitant]
     Dates: start: 20110106, end: 20110106

REACTIONS (2)
  - PALLOR [None]
  - RESPIRATORY ARREST [None]
